FAERS Safety Report 6094643-X (Version None)
Quarter: 2009Q1

REPORT INFORMATION
  Report Type: 
  Country: None (occurrence: None)
  Receive Date: 20090226
  Receipt Date: 20090216
  Transmission Date: 20090719
  Serious: Yes (Other)
  Sender: FDA-Public Use
  Company Number: DE-GILEAD-E2B_00000292

PATIENT
  Sex: Male
  Weight: 57 kg

DRUGS (7)
  1. AMBRISENTAN [Suspect]
     Indication: PULMONARY ARTERIAL HYPERTENSION
     Dosage: 5MG PER DAY
     Route: 048
     Dates: start: 20081028, end: 20081107
  2. FUROSEMID [Concomitant]
     Route: 065
  3. SPIRONOLACTONE [Concomitant]
     Route: 048
  4. ASPIRIN [Concomitant]
     Route: 048
  5. BISOPROLOL [Concomitant]
     Dosage: 5MG UNKNOWN
     Route: 048
  6. DOXAZOSIN MESYLATE [Concomitant]
     Route: 048
  7. DIURETICS [Concomitant]
     Route: 065

REACTIONS (4)
  - DYSPNOEA [None]
  - FATIGUE [None]
  - GENERAL PHYSICAL HEALTH DETERIORATION [None]
  - OEDEMA [None]
